FAERS Safety Report 7163104-9 (Version None)
Quarter: 2010Q4

REPORT INFORMATION
  Report Type: 
  Country: None (occurrence: None)
  Receive Date: 20101215
  Receipt Date: 20100224
  Transmission Date: 20110411
  Serious: Yes (Other)
  Sender: FDA-Public Use
  Company Number: US-PFIZER INC-2010024251

PATIENT
  Sex: Female
  Weight: 98.866 kg

DRUGS (7)
  1. LYRICA [Suspect]
     Indication: COMPLEX REGIONAL PAIN SYNDROME
     Dosage: 100 MG, 1X/DAY
     Route: 048
     Dates: start: 20100101, end: 20100219
  2. AMITRIPTYLINE [Concomitant]
     Dosage: UNK
  3. CLONAZEPAM [Concomitant]
     Dosage: UNK
  4. OLOPATADINE [Concomitant]
     Dosage: UNK
  5. PRISTIQ [Concomitant]
     Dosage: UNK
  6. ZYPREXA [Concomitant]
     Dosage: UNK
  7. TIZANIDINE [Concomitant]
     Dosage: UNK

REACTIONS (9)
  - CHILLS [None]
  - DIARRHOEA [None]
  - HEADACHE [None]
  - HYPERHIDROSIS [None]
  - INSOMNIA [None]
  - MIGRAINE [None]
  - NAUSEA [None]
  - PAIN [None]
  - PYREXIA [None]
